FAERS Safety Report 6556714-0 (Version None)
Quarter: 2010Q1

REPORT INFORMATION
  Report Type: 
  Country: None (occurrence: None)
  Receive Date: 20100128
  Receipt Date: 20100120
  Transmission Date: 20100710
  Serious: No
  Sender: FDA-Public Use
  Company Number: JP-PFIZER INC-2009308493

PATIENT
  Age: 71 Year
  Sex: Female

DRUGS (1)
  1. REVATIO [Suspect]
     Dosage: 60 MG, 1X/DAY
     Route: 048
     Dates: start: 20091118, end: 20091212

REACTIONS (1)
  - ATRIAL FIBRILLATION [None]
